FAERS Safety Report 25489061 (Version 2)
Quarter: 2025Q2

REPORT INFORMATION
  Report Type: Report from Study
  Country: US (occurrence: US)
  Receive Date: 20250627
  Receipt Date: 20250630
  Transmission Date: 20250717
  Serious: Yes (Death, Other)
  Sender: NOVARTIS
  Company Number: US-002147023-NVSC2025US102664

PATIENT
  Sex: Female

DRUGS (1)
  1. KESIMPTA [Suspect]
     Active Substance: OFATUMUMAB
     Indication: Relapsing-remitting multiple sclerosis
     Dosage: 0.4 ML, QMO
     Route: 058
     Dates: start: 20210121

REACTIONS (3)
  - Lung neoplasm malignant [Fatal]
  - Malaise [Fatal]
  - Upper respiratory tract infection [Fatal]
